FAERS Safety Report 17011699 (Version 3)
Quarter: 2020Q1

REPORT INFORMATION
  Report Type: Spontaneous
  Country: FR (occurrence: FR)
  Receive Date: 20191108
  Receipt Date: 20200219
  Transmission Date: 20200409
  Serious: Yes (Hospitalization)
  Sender: FDA-Public Use
  Company Number: FR-ANIPHARMA-2019-FR-000231

PATIENT
  Age: 53 Year
  Sex: Male

DRUGS (18)
  1. FUROSEMIDE (NON-SPECIFIC) [Concomitant]
     Active Substance: FUROSEMIDE
     Indication: HYPERTENSION
     Dosage: 1 DF QD
  2. TOUJEO [Concomitant]
     Active Substance: INSULIN GLARGINE
     Dosage: 60 IU QD
     Route: 065
  3. GLIBENCLAMIDE [Concomitant]
     Active Substance: GLYBURIDE
     Dosage: 5 MG DAILY
     Route: 048
     Dates: end: 20191004
  4. PARACETAMOL [Concomitant]
     Active Substance: ACETAMINOPHEN
     Dosage: 3 G QD
     Route: 048
  5. METOCLOPRAMIDE (NON-SPECIFIC) [Suspect]
     Active Substance: METOCLOPRAMIDE
     Indication: ANALGESIC INTERVENTION SUPPORTIVE THERAPY
     Dosage: 10 MG PRN
  6. APREPITANT. [Suspect]
     Active Substance: APREPITANT
     Dosage: 125 MG TID
     Route: 048
     Dates: start: 20190923, end: 20190925
  7. SITAGLIPTIN [Suspect]
     Active Substance: SITAGLIPTIN
     Dosage: 100 MG DAILY
     Route: 048
     Dates: end: 20191004
  8. CANDESARTAN CILEXETIL. [Suspect]
     Active Substance: CANDESARTAN CILEXETIL
     Indication: HYPERTENSION
     Dosage: 16 MG DAILY
     Route: 048
  9. CARBOPLATIN. [Suspect]
     Active Substance: CARBOPLATIN
     Dosage: 579 MG DAILY
     Route: 042
     Dates: start: 20190923, end: 20190923
  10. TECENTRIQ [Concomitant]
     Active Substance: ATEZOLIZUMAB
     Dosage: 1200 MG DAILY
     Route: 042
     Dates: start: 20190923, end: 20190923
  11. HYDROCHLOROTHIAZIDE. [Suspect]
     Active Substance: HYDROCHLOROTHIAZIDE
     Dosage: 25 MG DAILY
     Route: 048
  12. PREGABALIN. [Suspect]
     Active Substance: PREGABALIN
     Dosage: 100 MG DAILY
     Route: 048
  13. OXYNORMORO [Suspect]
     Active Substance: OXYCODONE HYDROCHLORIDE
     Dosage: 5 MG PRN / 60 MG DAILY
     Route: 048
  14. ZOPICLONE [Concomitant]
     Active Substance: ZOPICLONE
     Dosage: 7.5 MG QD
     Route: 048
  15. ETOPOSIDE. [Suspect]
     Active Substance: ETOPOSIDE
     Dosage: 195 MG TID
     Route: 042
     Dates: start: 20190923, end: 20190925
  16. OXYCODONE [Suspect]
     Active Substance: OXYCODONE
     Indication: ANALGESIC INTERVENTION SUPPORTIVE THERAPY
     Dosage: 60 MG DAILY
  17. METFORMIN [Concomitant]
     Active Substance: METFORMIN HYDROCHLORIDE
     Dosage: 700 MG QD
  18. ONDANSETRON HYDROCHLORIDE. [Suspect]
     Active Substance: ONDANSETRON HYDROCHLORIDE
     Dosage: THREE TIMES A DAY
     Route: 042
     Dates: start: 20190923, end: 20190925

REACTIONS (2)
  - Subileus [Recovered/Resolved]
  - Oedema peripheral [Recovering/Resolving]

NARRATIVE: CASE EVENT DATE: 20190925
